FAERS Safety Report 5660848-2 (Version None)
Quarter: 2008Q1

REPORT INFORMATION
  Report Type: 
  Country: None (occurrence: None)
  Receive Date: 20080311
  Receipt Date: 20080305
  Transmission Date: 20080703
  Serious: Yes (Hospitalization, Other)
  Sender: FDA-Public Use
  Company Number: US-ALLERGAN-0802706US

PATIENT
  Sex: Female

DRUGS (8)
  1. BOTOX PURIFIED NEUROTOXIN COMPLEX [Suspect]
     Indication: TORTICOLLIS
     Dosage: 600 UNITS, SINGLE
     Route: 030
     Dates: start: 20071029, end: 20071029
  2. LYRICA [Concomitant]
  3. IMITREX [Concomitant]
  4. FENTANYL [Concomitant]
     Route: 062
  5. KLONOPIN [Concomitant]
  6. EFFEXOR [Concomitant]
  7. PROVIGIL [Concomitant]
     Indication: INSOMNIA
  8. LITHIUM CARBONATE [Concomitant]

REACTIONS (2)
  - DYSPNOEA [None]
  - PNEUMOTHORAX [None]
